FAERS Safety Report 5401894-3 (Version None)
Quarter: 2007Q3

REPORT INFORMATION
  Report Type: 
  Country: None (occurrence: None)
  Receive Date: 20070731
  Receipt Date: 20070718
  Transmission Date: 20080115
  Serious: Yes (Hospitalization, Other)
  Sender: FDA-Public Use
  Company Number: US-SHR-US-2006-036998

PATIENT
  Age: 56 Year
  Sex: Female
  Weight: 73 kg

DRUGS (12)
  1. BETASERON [Suspect]
     Indication: RELAPSING-REMITTING MULTIPLE SCLEROSIS
     Dosage: 8 MIU, EVERY 2D
     Route: 058
     Dates: start: 20050915, end: 20070214
  2. PANCREASE MT [Concomitant]
     Dosage: 2 BEFORE EVERY MEAL
  3. EFFEXOR XR [Concomitant]
     Dosage: 150 MG, 1X/DAY
  4. CLONAZEPAM [Concomitant]
     Dosage: 0.25 MG/0.25 MG/1 MG
  5. HYDROCHLOROTHIAZIDE [Concomitant]
     Dosage: 25 MG, 1X/DAY
  6. FERROUS SULFATE [Concomitant]
     Dosage: 325 MG, 2X/DAY
  7. SYNTHROID [Concomitant]
     Dosage: 75 A?G/DAY, UNK
  8. LAMICTAL [Concomitant]
     Dosage: 200 MG, 1X/DAY
  9. POTASSIUM CHLORIDE [Concomitant]
     Dosage: 10 MEQ, DAILY
  10. LUNESTA [Concomitant]
     Dosage: 3 MG OR 6 MG PRN AT BEDTIME
  11. NOVOLOG [Concomitant]
     Dosage: 2 IU, 3X/DAY, BEFORE EACH MEAL
  12. LANTUS [Concomitant]
     Dosage: 10 IU, 1X/DAY

REACTIONS (3)
  - DEPRESSION [None]
  - NEUROENDOCRINE CARCINOMA [None]
  - PANCREATIC NEOPLASM [None]
